FAERS Safety Report 4915098-1 (Version None)
Quarter: 2006Q1

REPORT INFORMATION
  Report Type: 
  Country: None (occurrence: None)
  Receive Date: 20060215
  Receipt Date: 20060215
  Transmission Date: 20060701
  Serious: Yes (Hospitalization)
  Sender: FDA-Public Use
  Company Number: None

PATIENT
  Age: 36 Year
  Sex: Female

DRUGS (1)
  1. CLONIDINE [Suspect]
     Indication: ANXIETY
     Dosage: 0.5MG TID PO
     Route: 048
     Dates: start: 20051003, end: 20051003

REACTIONS (3)
  - BLOOD PRESSURE DECREASED [None]
  - DRUG PRESCRIBING ERROR [None]
  - WRONG DRUG ADMINISTERED [None]
